FAERS Safety Report 6417241-4 (Version None)
Quarter: 2009Q4

REPORT INFORMATION
  Report Type: 
  Country: None (occurrence: None)
  Receive Date: 20091027
  Receipt Date: 20091027
  Transmission Date: 20100525
  Serious: Yes (Other)
  Sender: FDA-Public Use
  Company Number: None

PATIENT
  Age: 55 Year
  Sex: Male
  Weight: 71.6683 kg

DRUGS (5)
  1. NEXAVAR [Suspect]
     Indication: HEPATIC NEOPLASM MALIGNANT
     Dosage: 200 MG, BID, ORAL 400 MG, BID, ORAL
     Route: 048
     Dates: start: 20090602, end: 20090603
  2. NEXAVAR [Suspect]
     Indication: HEPATIC NEOPLASM MALIGNANT
     Dosage: 200 MG, BID, ORAL 400 MG, BID, ORAL
     Route: 048
     Dates: start: 20090602, end: 20090701
  3. NEXAVAR [Suspect]
     Indication: HEPATIC NEOPLASM MALIGNANT
     Dosage: 200 MG, BID, ORAL 400 MG, BID, ORAL
     Route: 048
     Dates: start: 20090604, end: 20090701
  4. LEVOTHYROXINE SODIUM [Concomitant]
  5. HYDROMORPHONE [Concomitant]

REACTIONS (11)
  - BLISTER [None]
  - CONDITION AGGRAVATED [None]
  - CONFUSIONAL STATE [None]
  - FATIGUE [None]
  - GAIT DISTURBANCE [None]
  - LETHARGY [None]
  - PAIN OF SKIN [None]
  - SKIN DISCOLOURATION [None]
  - SKIN FISSURES [None]
  - SKIN REACTION [None]
  - WEIGHT DECREASED [None]
